FAERS Safety Report 17920627 (Version 1)
Quarter: 2020Q2

REPORT INFORMATION
  Report Type: Spontaneous
  Country: US (occurrence: US)
  Receive Date: 20200621
  Receipt Date: 20200621
  Transmission Date: 20200714
  Serious: No
  Sender: FDA-Public Use
  Company Number: US-TEVA-2020-US-1791703

PATIENT
  Sex: Female
  Weight: 41.2 kg

DRUGS (1)
  1. AJOVY [Suspect]
     Active Substance: FREMANEZUMAB-VFRM
     Dosage: AUTOINJECTOR

REACTIONS (3)
  - Lack of injection site rotation [Unknown]
  - Product substitution issue [Unknown]
  - Injection site bruising [Recovering/Resolving]
